FAERS Safety Report 6266550-0 (Version None)
Quarter: 2009Q3

REPORT INFORMATION
  Report Type: 
  Country: None (occurrence: None)
  Receive Date: 20090710
  Receipt Date: 20090626
  Transmission Date: 20100115
  Serious: Yes (Hospitalization)
  Sender: FDA-Public Use
  Company Number: 8048218

PATIENT
  Age: 45 Year
  Sex: Female
  Weight: 110 kg

DRUGS (9)
  1. CIMZIA [Suspect]
     Indication: CROHN'S DISEASE
     Dosage: 400 MG SC
     Route: 058
     Dates: start: 20090301
  2. NEXIUM [Concomitant]
  3. XANAX [Concomitant]
  4. TRAZODONE HCL [Concomitant]
  5. CYMBALTA [Concomitant]
  6. REGLAN [Concomitant]
  7. ZOFRAN [Concomitant]
  8. OXYCONTIN [Concomitant]
  9. DURAGESIC-100 [Concomitant]

REACTIONS (2)
  - CLOSTRIDIAL INFECTION [None]
  - UPPER RESPIRATORY TRACT INFECTION [None]
